FAERS Safety Report 16112444 (Version 1)
Quarter: 2019Q1

REPORT INFORMATION
  Report Type: Report from Study
  Country: US (occurrence: US)
  Receive Date: 20190325
  Receipt Date: 20190325
  Transmission Date: 20190418
  Serious: Yes (Other)
  Sender: FDA-Public Use
  Company Number: US-PFIZER INC-2019064831

PATIENT
  Age: 55 Year
  Sex: Female

DRUGS (1)
  1. IBRANCE [Suspect]
     Active Substance: PALBOCICLIB
     Indication: BREAST CANCER
     Dosage: 125 MG, CYCLIC, (21 DAYS ON AND 7 DAYS OFF)
     Route: 048
     Dates: start: 20190123

REACTIONS (10)
  - Oropharyngeal pain [Unknown]
  - Alopecia [Unknown]
  - Headache [Unknown]
  - Chills [Unknown]
  - Nasopharyngitis [Unknown]
  - Rhinorrhoea [Unknown]
  - Rash pruritic [Not Recovered/Not Resolved]
  - Product dose omission [Unknown]
  - Epistaxis [Unknown]
  - White blood cell count decreased [Unknown]
